APPROVED DRUG PRODUCT: ERIVEDGE
Active Ingredient: VISMODEGIB
Strength: 150MG
Dosage Form/Route: CAPSULE;ORAL
Application: N203388 | Product #001
Applicant: GENENTECH INC
Approved: Jan 30, 2012 | RLD: Yes | RS: Yes | Type: RX

PATENTS:
Patent 9278961 | Expires: Dec 15, 2028
Patent 7888364 | Expires: Nov 11, 2028